FAERS Safety Report 7357586-7 (Version None)
Quarter: 2011Q1

REPORT INFORMATION
  Report Type: 
  Country: None (occurrence: None)
  Receive Date: 20110314
  Receipt Date: 20110314
  Transmission Date: 20110831
  Serious: Yes (Life-Threatening, Hospitalization, Other)
  Sender: FDA-Public Use
  Company Number: None

PATIENT
  Age: 68 Year
  Sex: Male
  Weight: 81.6475 kg

DRUGS (1)
  1. TYLENOL W/ CODEINE [Suspect]

REACTIONS (1)
  - VOMITING [None]
